FAERS Safety Report 7588144-7 (Version None)
Quarter: 2011Q3

REPORT INFORMATION
  Report Type: 
  Country: None (occurrence: None)
  Receive Date: 20110705
  Receipt Date: 20110120
  Transmission Date: 20111222
  Serious: Yes (Hospitalization, Other)
  Sender: FDA-Public Use
  Company Number: US-BAYER-201039056NA

PATIENT
  Age: 31 Year
  Sex: Female
  Weight: 63.492 kg

DRUGS (4)
  1. YAZ [Suspect]
     Indication: CONTRACEPTION
     Dosage: UNK
     Dates: start: 20081116
  2. TIGAN [Concomitant]
  3. YASMIN [Suspect]
     Indication: CONTRACEPTION
     Dosage: UNK UNK, UNK
     Route: 048
     Dates: start: 20050301, end: 20071001
  4. PERCOCET [Concomitant]

REACTIONS (4)
  - INJURY [None]
  - CHOLECYSTITIS CHRONIC [None]
  - CHOLELITHIASIS [None]
  - GALLBLADDER NON-FUNCTIONING [None]
